FAERS Safety Report 8430134-6 (Version None)
Quarter: 2012Q2

REPORT INFORMATION
  Report Type: 
  Country: None (occurrence: None)
  Receive Date: 20120612
  Receipt Date: 20120604
  Transmission Date: 20120825
  Serious: Yes (Hospitalization)
  Sender: FDA-Public Use
  Company Number: US-MERCK-1106USA03846

PATIENT
  Age: 53 Year
  Sex: Female
  Weight: 75 kg

DRUGS (6)
  1. CALCIUM (UNSPECIFIED) [Concomitant]
     Route: 048
     Dates: start: 19980101
  2. FOSAMAX PLUS D [Suspect]
     Indication: OSTEOPOROSIS
     Route: 048
  3. FOSAMAX [Suspect]
     Route: 048
     Dates: start: 20080225, end: 20100610
  4. FOSAMAX [Suspect]
     Indication: OSTEOPOROSIS
     Route: 048
     Dates: start: 19960101, end: 20100101
  5. ESTRADIOL [Concomitant]
     Route: 065
     Dates: start: 19940101
  6. FOSAMAX [Suspect]
     Route: 048
     Dates: start: 19980101, end: 20010105

REACTIONS (47)
  - ARTHRITIS [None]
  - CARDIAC FAILURE CONGESTIVE [None]
  - PYREXIA [None]
  - RIB FRACTURE [None]
  - IRRITABLE BOWEL SYNDROME [None]
  - HYPERTENSION [None]
  - HAEMORRHAGIC ANAEMIA [None]
  - BONE METABOLISM DISORDER [None]
  - DEMENTIA [None]
  - FOLATE DEFICIENCY [None]
  - URINARY TRACT INFECTION [None]
  - OSTEOMALACIA [None]
  - FALL [None]
  - HAEMANGIOMA [None]
  - BLOOD PRESSURE INCREASED [None]
  - VITAMIN D DEFICIENCY [None]
  - GASTROOESOPHAGEAL REFLUX DISEASE [None]
  - UTERINE CERVIX STENOSIS [None]
  - TOOTH DISORDER [None]
  - ABDOMINAL ADHESIONS [None]
  - HAEMORRHOIDS [None]
  - CONSTIPATION [None]
  - BACK PAIN [None]
  - MOBILITY DECREASED [None]
  - VOLVULUS [None]
  - VITAMIN B12 DEFICIENCY [None]
  - IRON DEFICIENCY ANAEMIA [None]
  - CORONARY ARTERY DISEASE [None]
  - LOSS OF CONSCIOUSNESS [None]
  - SLEEP APNOEA SYNDROME [None]
  - POSTMENOPAUSAL HAEMORRHAGE [None]
  - NAUSEA [None]
  - HYPERLIPIDAEMIA [None]
  - BALANCE DISORDER [None]
  - TENOSYNOVITIS STENOSANS [None]
  - CONCUSSION [None]
  - FEMUR FRACTURE [None]
  - DEPRESSION [None]
  - DIVERTICULUM INTESTINAL [None]
  - RED BLOOD CELL SEDIMENTATION RATE INCREASED [None]
  - OSTEOPENIA [None]
  - HEAD INJURY [None]
  - ANAEMIA POSTOPERATIVE [None]
  - HIATUS HERNIA [None]
  - HERPES ZOSTER [None]
  - ANTINUCLEAR ANTIBODY POSITIVE [None]
  - ANXIETY [None]
